FAERS Safety Report 9187773 (Version 1)
Quarter: 2013Q1

REPORT INFORMATION
  Report Type: Spontaneous
  Country: BR (occurrence: BR)
  Receive Date: 20130325
  Receipt Date: 20130325
  Transmission Date: 20140127
  Serious: Yes (Other)
  Sender: FDA-Public Use
  Company Number: BR-BAYER-2013-034146

PATIENT
  Age: 43 Year
  Sex: Female

DRUGS (2)
  1. YAZ [Suspect]
     Indication: HORMONE LEVEL ABNORMAL
     Dosage: UNK
     Route: 048
     Dates: start: 200705, end: 201205
  2. YAZ [Suspect]
     Indication: ENDOMETRIOSIS

REACTIONS (17)
  - Off label use [None]
  - Breast disorder [None]
  - Inappropriate schedule of drug administration [None]
  - Weight increased [None]
  - Fatigue [None]
  - Depressed mood [None]
  - Hypothyroidism [Recovered/Resolved]
  - Blood cholesterol abnormal [Recovered/Resolved]
  - Syncope [Recovered/Resolved]
  - Loss of consciousness [Recovered/Resolved]
  - Syncope [Recovered/Resolved]
  - Dyspnoea [Recovered/Resolved]
  - Autoimmune thyroiditis [None]
  - Fall [None]
  - Head injury [None]
  - Uterine enlargement [None]
  - Menorrhagia [None]
